FAERS Safety Report 10608524 (Version 1)
Quarter: 2014Q4

REPORT INFORMATION
  Report Type: Spontaneous
  Country: US (occurrence: US)
  Receive Date: 20141125
  Receipt Date: 20141125
  Transmission Date: 20150529
  Serious: Yes (Other)
  Sender: FDA-Public Use
  Company Number: US-PFIZER INC-2014321628

PATIENT
  Age: 76 Year
  Sex: Male

DRUGS (3)
  1. LIPITOR [Suspect]
     Active Substance: ATORVASTATIN CALCIUM
     Indication: BLOOD CHOLESTEROL INCREASED
     Dosage: UNK
     Dates: end: 2013
  2. HYDROCHLOROTHIAZIDE. [Concomitant]
     Active Substance: HYDROCHLOROTHIAZIDE
     Indication: BLOOD PRESSURE ABNORMAL
     Dosage: UNK
  3. MORPHINE [Concomitant]
     Active Substance: MORPHINE
     Indication: PAIN
     Dosage: 30 MG, AS NEEDED

REACTIONS (16)
  - Muscular weakness [Unknown]
  - Myalgia [Unknown]
  - Dyspnoea [Unknown]
  - Neck pain [Unknown]
  - Benign bone neoplasm [Unknown]
  - Back disorder [Unknown]
  - Swelling [Unknown]
  - Loss of consciousness [Unknown]
  - Fall [Unknown]
  - Heart valve incompetence [Unknown]
  - Muscle atrophy [Unknown]
  - Dysstasia [Unknown]
  - Muscle spasms [Unknown]
  - Weight decreased [Unknown]
  - Sleep disorder [Unknown]
  - Body height decreased [Unknown]
